FAERS Safety Report 4340100-8 (Version None)
Quarter: 2004Q2

REPORT INFORMATION
  Report Type: 
  Country: None (occurrence: None)
  Receive Date: 20040412
  Receipt Date: 20040402
  Transmission Date: 20050107
  Serious: No
  Sender: FDA-Public Use
  Company Number: 2004CG00662

PATIENT
  Sex: Male

DRUGS (5)
  1. IRESSA [Suspect]
     Indication: LUNG NEOPLASM MALIGNANT
     Dosage: 250 MG DAILY PO
     Route: 048
     Dates: start: 20040301
  2. GEMZAR [Concomitant]
  3. CISPLATIN [Concomitant]
  4. NAVELBINE [Concomitant]
  5. RADIOTHERAPY [Concomitant]

REACTIONS (4)
  - BODY TEMPERATURE INCREASED [None]
  - HICCUPS [None]
  - LUNG CREPITATION [None]
  - RESPIRATORY DISORDER [None]
